FAERS Safety Report 11920791 (Version 1)
Quarter: 2016Q1

REPORT INFORMATION
  Report Type: Spontaneous
  Country: US (occurrence: US)
  Receive Date: 20160115
  Receipt Date: 20160115
  Transmission Date: 20160526
  Serious: No
  Sender: FDA-Public Use
  Company Number: US-ASTELLAS-2015US031036

PATIENT
  Age: 63 Year
  Sex: Female

DRUGS (1)
  1. MYRBETRIQ [Suspect]
     Active Substance: MIRABEGRON
     Indication: HYPERTONIC BLADDER
     Route: 048
     Dates: start: 20150513, end: 20150617

REACTIONS (8)
  - Urinary tract infection [Recovered/Resolved]
  - Pain [Unknown]
  - Influenza like illness [Recovered/Resolved]
  - Cough [Recovered/Resolved]
  - Depression [Recovered/Resolved]
  - Nervousness [Recovered/Resolved]
  - Sinus disorder [Unknown]
  - Fatigue [Unknown]

NARRATIVE: CASE EVENT DATE: 201506
